FAERS Safety Report 4928026-X (Version None)
Quarter: 2006Q1

REPORT INFORMATION
  Report Type: 
  Country: None (occurrence: None)
  Receive Date: 20060223
  Receipt Date: 20060208
  Transmission Date: 20060701
  Serious: Yes (Disabling, Other)
  Sender: FDA-Public Use
  Company Number: 2006-BP-01492RO

PATIENT
  Age: 81 Year
  Sex: Female

DRUGS (4)
  1. METHOTREXATE [Suspect]
     Indication: TEMPORAL ARTERITIS
     Dosage: 25 MG PER WEEK
     Dates: start: 20010601
  2. PREDNISONE TAB [Suspect]
     Indication: TEMPORAL ARTERITIS
     Dosage: HIGH 80MG OD, DECR TO 50MG OD; THEN 12.5MG OD (NR), IO
     Route: 031
     Dates: start: 20010601
  3. FOLIC ACID [Concomitant]
  4. ALLOPURINOL [Concomitant]

REACTIONS (13)
  - EYE HAEMORRHAGE [None]
  - GLAUCOMA [None]
  - HEADACHE [None]
  - HYPHAEMA [None]
  - LYMPHOMA [None]
  - MALIGNANT NEOPLASM OF EYE [None]
  - NECROTISING RETINITIS [None]
  - NEOVASCULARISATION [None]
  - OPTIC ATROPHY [None]
  - OPTIC ISCHAEMIC NEUROPATHY [None]
  - RED BLOOD CELL SEDIMENTATION RATE INCREASED [None]
  - RENAL IMPAIRMENT [None]
  - RETINAL ARTERY OCCLUSION [None]
